FAERS Safety Report 22106813 (Version 1)
Quarter: 2023Q1

REPORT INFORMATION
  Report Type: Spontaneous
  Country: JP (occurrence: JP)
  Receive Date: 20230317
  Receipt Date: 20230317
  Transmission Date: 20230418
  Serious: Yes (Other)
  Sender: FDA-Public Use
  Company Number: JP-ASTELLAS-2023JP003060

PATIENT
  Sex: Female

DRUGS (2)
  1. ZOLPIDEM TARTRATE [Suspect]
     Active Substance: ZOLPIDEM TARTRATE
     Indication: Product used for unknown indication
     Dosage: 2 DF, ONCE DAILY BEFORE SLEEPING
     Route: 048
  2. ZOLPIDEM TARTRATE [Suspect]
     Active Substance: ZOLPIDEM TARTRATE
     Dosage: 1 DF, ONCE DAILY BEFORE SLEEPING,
     Route: 048
     Dates: start: 20230305

REACTIONS (5)
  - Feeling abnormal [Unknown]
  - Feeling abnormal [Unknown]
  - Product residue present [Unknown]
  - Photopsia [Unknown]
  - Irritability [Unknown]

NARRATIVE: CASE EVENT DATE: 20230306
